FAERS Safety Report 14169149 (Version 1)
Quarter: 2017Q4

REPORT INFORMATION
  Report Type: Report from Study
  Country: US (occurrence: US)
  Receive Date: 20171107
  Receipt Date: 20171107
  Transmission Date: 20180321
  Serious: Yes (Death)
  Sender: FDA-Public Use
  Company Number: US-ACTELION-A-NJ2016-135353

PATIENT
  Age: 59 Year
  Sex: Female

DRUGS (3)
  1. TYVASO [Concomitant]
     Active Substance: TREPROSTINIL
  2. REVATIO [Concomitant]
     Active Substance: SILDENAFIL CITRATE
  3. OPSUMIT [Suspect]
     Active Substance: MACITENTAN
     Indication: PULMONARY ARTERIAL HYPERTENSION
     Dosage: 10 MG, QD
     Route: 048
     Dates: start: 20141024

REACTIONS (11)
  - Cough [Unknown]
  - Burning sensation [Unknown]
  - Oropharyngeal pain [Unknown]
  - Death [Fatal]
  - Throat irritation [Unknown]
  - Vomiting [Unknown]
  - Chest discomfort [Unknown]
  - Oedema [Unknown]
  - Ascites [Unknown]
  - Lip exfoliation [Unknown]
  - Headache [Unknown]

NARRATIVE: CASE EVENT DATE: 20171019
